FAERS Safety Report 8978371 (Version 1)
Quarter: 2012Q4

REPORT INFORMATION
  Report Type: 
  Country: GB (occurrence: GB)
  Receive Date: 20121221
  Receipt Date: 20121221
  Transmission Date: 20130627
  Serious: Yes (Other)
  Sender: FDA-Public Use
  Company Number: GB-BRISTOL-MYERS SQUIBB COMPANY-17201146

PATIENT
  Age: 62 Year
  Sex: Male

DRUGS (2)
  1. ETOPOSIDE [Suspect]
     Indication: SMALL CELL LUNG CANCER STAGE UNSPECIFIED
     Dosage: 1DF:  200mg/m2 on day 1:IV, oral 100mg/m2 on day 2 +3(BID)
Second cycle in Feb 2006
     Route: 042
  2. CARBOPLATIN [Suspect]
     Indication: SMALL CELL LUNG CANCER STAGE UNSPECIFIED
     Dosage: 1DF: AUC5 on day 1
Second cycle in Feb 2006
     Route: 042

REACTIONS (1)
  - Intestinal obstruction [Recovering/Resolving]
